FAERS Safety Report 19536200 (Version 1)
Quarter: 2021Q3

REPORT INFORMATION
  Report Type: Spontaneous
  Country: US (occurrence: US)
  Receive Date: 20210714
  Receipt Date: 20210714
  Transmission Date: 20211014
  Serious: Yes (Other)
  Sender: FDA-Public Use
  Company Number: None

PATIENT
  Age: 72 Year
  Sex: Male
  Weight: 137 kg

DRUGS (1)
  1. CEFTAZIDIME. [Suspect]
     Active Substance: CEFTAZIDIME
     Indication: PERIRECTAL ABSCESS
     Route: 040
     Dates: start: 20210611, end: 20210707

REACTIONS (1)
  - Tremor [None]

NARRATIVE: CASE EVENT DATE: 20210707
